FAERS Safety Report 9478635 (Version 3)
Quarter: 2013Q4

REPORT INFORMATION
  Report Type: Spontaneous
  Country: US (occurrence: US)
  Receive Date: 20130827
  Receipt Date: 20131024
  Transmission Date: 20140711
  Serious: Yes (Other)
  Sender: FDA-Public Use
  Company Number: US-BAYER-2013-102854

PATIENT
  Age: 37 Year
  Sex: Female

DRUGS (1)
  1. MIRENA [Suspect]
     Indication: CONTRACEPTION
     Dosage: 20 MCG/24HR, CONT
     Route: 015
     Dates: start: 20130703, end: 20130816

REACTIONS (4)
  - Uterine haemorrhage [Not Recovered/Not Resolved]
  - Pelvic pain [Not Recovered/Not Resolved]
  - Device expulsion [None]
  - Abdominal pain lower [None]
